FAERS Safety Report 8963046 (Version 1)
Quarter: 2012Q4

REPORT INFORMATION
  Report Type: Spontaneous
  Country: US (occurrence: None)
  Receive Date: 20121204
  Receipt Date: 20121204
  Transmission Date: 20130627
  Serious: Yes (Hospitalization, Other)
  Sender: FDA-Public Use
  Company Number: 2012P1065459

PATIENT
  Age: 27 Year
  Sex: Male

DRUGS (3)
  1. BENZTROPINE [Suspect]
  2. OLANZAPINE [Suspect]
  3. BUPROPION [Concomitant]

REACTIONS (1)
  - Colitis ischaemic [None]
